FAERS Safety Report 8899742 (Version 1)
Quarter: 2012Q4

REPORT INFORMATION
  Report Type: 
  Country: US (occurrence: US)
  Receive Date: 20121108
  Receipt Date: 20121108
  Transmission Date: 20130627
  Serious: No
  Sender: FDA-Public Use
  Company Number: US-AMGEN-USASP2012035619

PATIENT
  Age: 69 Year
  Weight: 67.12 kg

DRUGS (9)
  1. ENBREL [Suspect]
     Indication: PRODUCT USED FOR UNKNOWN INDICATION
     Dosage: 50 mg, qwk
     Route: 058
  2. METHOTREXATE [Concomitant]
     Dosage: 20 mg, UNK
  3. MELOXICAM [Concomitant]
     Dosage: 7.5 mg, UNK
  4. PREDNISONE [Concomitant]
     Dosage: 5 mg, UNK
  5. FOLIC ACID [Concomitant]
     Dosage: UNK
  6. SIMVASTATIN [Concomitant]
     Dosage: 5 mg, UNK
  7. DIOVAN [Concomitant]
     Dosage: 160 mg, UNK
  8. ZOLOFT [Concomitant]
     Dosage: 25 mg, UNK
  9. CARVEDILOL [Concomitant]
     Dosage: 12.5 mg, UNK

REACTIONS (4)
  - Pain in extremity [Unknown]
  - Musculoskeletal stiffness [Unknown]
  - Contusion [Unknown]
  - Dyspnoea [Unknown]
